FAERS Safety Report 21194304 (Version 1)
Quarter: 2022Q3

REPORT INFORMATION
  Report Type: Spontaneous
  Country: US (occurrence: None)
  Receive Date: 20220809
  Receipt Date: 20220809
  Transmission Date: 20221027
  Serious: Yes (unspecified)
  Sender: FDA-Public Use
  Company Number: None

PATIENT
  Age: 57 Year
  Sex: Female

DRUGS (1)
  1. GABAPENTIN [Suspect]
     Active Substance: GABAPENTIN
     Indication: Restless legs syndrome
     Dosage: OTHER QUANTITY : 1 CAPSULE(S);?FREQUENCY : TWICE A DAY;?
     Route: 048
     Dates: start: 20220701

REACTIONS (10)
  - Nausea [None]
  - Dizziness [None]
  - Irritability [None]
  - Dissociation [None]
  - Product physical issue [None]
  - Product quality issue [None]
  - Product quality issue [None]
  - Product dose omission issue [None]
  - Product quality control issue [None]
  - Product packaging quantity issue [None]

NARRATIVE: CASE EVENT DATE: 20220723
